FAERS Safety Report 12383642 (Version 1)
Quarter: 2016Q2

REPORT INFORMATION
  Report Type: Report from Study
  Country: US (occurrence: US)
  Receive Date: 20160519
  Receipt Date: 20160519
  Transmission Date: 20160815
  Serious: No
  Sender: FDA-Public Use
  Company Number: US-AMGEN-USASL2016062341

PATIENT
  Age: 60 Year
  Sex: Male

DRUGS (1)
  1. ENBREL [Suspect]
     Active Substance: ETANERCEPT
     Indication: PSORIATIC ARTHROPATHY
     Dosage: QWK
     Route: 065
     Dates: start: 201402

REACTIONS (6)
  - Condition aggravated [Unknown]
  - Incorrect product storage [Unknown]
  - Malaise [Unknown]
  - Wrong technique in product usage process [Unknown]
  - Arthropathy [Unknown]
  - Musculoskeletal disorder [Unknown]
